FAERS Safety Report 6337054-1 (Version None)
Quarter: 2009Q3

REPORT INFORMATION
  Report Type: 
  Country: None (occurrence: None)
  Receive Date: 20090831
  Receipt Date: 20090821
  Transmission Date: 20100115
  Serious: Yes (Hospitalization)
  Sender: FDA-Public Use
  Company Number: RENA-1000507

PATIENT
  Age: 78 Year
  Sex: Male
  Weight: 75.2 kg

DRUGS (8)
  1. RENVELA [Suspect]
     Indication: HYPERPHOSPHATAEMIA
     Dosage: 0.8 G, QID, ORAL
     Route: 048
     Dates: start: 20090623, end: 20090720
  2. COUMADIN [Concomitant]
  3. ERGOCALCIFEROL [Concomitant]
  4. TERAZOSIN HCL [Concomitant]
  5. SPIRIVA [Concomitant]
  6. NASONEX [Concomitant]
  7. COMBIVENT [Concomitant]
  8. NEPHRO-VITE (VITAMINS NOS) [Concomitant]

REACTIONS (3)
  - CYSTITIS [None]
  - DRUG INEFFECTIVE [None]
  - PAIN [None]
